FAERS Safety Report 6984833-3 (Version None)
Quarter: 2010Q3

REPORT INFORMATION
  Report Type: 
  Country: None (occurrence: None)
  Receive Date: 20100915
  Receipt Date: 20100906
  Transmission Date: 20110219
  Serious: Yes (Other)
  Sender: FDA-Public Use
  Company Number: CN-ASTRAZENECA-2010SE41849

PATIENT
  Sex: Female

DRUGS (3)
  1. BETALOC ZOC [Suspect]
     Indication: HEART RATE INCREASED
     Route: 048
  2. BETALOC ZOC [Suspect]
     Route: 048
  3. BETALOC ZOC [Suspect]
     Route: 048

REACTIONS (1)
  - RENAL FAILURE ACUTE [None]
